FAERS Safety Report 12705404 (Version 1)
Quarter: 2016Q3

REPORT INFORMATION
  Report Type: Spontaneous
  Country: US (occurrence: None)
  Receive Date: 20160831
  Receipt Date: 20160831
  Transmission Date: 20161109
  Serious: Yes (Hospitalization, Other)
  Sender: FDA-Public Use
  Company Number: None

PATIENT
  Age: 56 Year
  Sex: Male
  Weight: 136 kg

DRUGS (1)
  1. DICLOFENAC [Suspect]
     Active Substance: DICLOFENAC
     Indication: PAIN
     Dosage: MG BID PO
     Route: 048
     Dates: start: 20130905, end: 20160621

REACTIONS (3)
  - Swelling [None]
  - Gastric ulcer [None]
  - Pain [None]

NARRATIVE: CASE EVENT DATE: 20160621
